FAERS Safety Report 6179528-2 (Version None)
Quarter: 2009Q2

REPORT INFORMATION
  Report Type: 
  Country: None (occurrence: None)
  Receive Date: 20090505
  Receipt Date: 20090430
  Transmission Date: 20091009
  Serious: Yes (Other)
  Sender: FDA-Public Use
  Company Number: FR-ROCHE-630455

PATIENT
  Age: 105 Day
  Sex: Male
  Weight: 6 kg

DRUGS (2)
  1. ROCEPHIN [Suspect]
     Indication: PYELONEPHRITIS
     Dosage: FREQUENCY: ONCE.
     Route: 065
  2. GENTAMYCIN SULFATE [Concomitant]
     Indication: PYELONEPHRITIS

REACTIONS (1)
  - CHOLELITHIASIS [None]
